FAERS Safety Report 5005335-X (Version None)
Quarter: 2006Q2

REPORT INFORMATION
  Report Type: 
  Country: None (occurrence: None)
  Receive Date: 20060515
  Receipt Date: 20060502
  Transmission Date: 20061013
  Serious: Yes (Death)
  Sender: FDA-Public Use
  Company Number: 2006059103

PATIENT
  Age: 6 Year
  Sex: Male

DRUGS (3)
  1. ZITHROMAX [Suspect]
     Indication: ILL-DEFINED DISORDER
     Dosage: ORALL
     Route: 048
     Dates: start: 20060410
  2. TUSSIONEX ^FISONS^ (HYDROCODONE, PHENYLTOLOXAMINE) [Suspect]
     Indication: COUGH
     Dosage: 5 ML (2,5 ML, 2 IN 1 D), ORAL
     Route: 048
     Dates: start: 20060410, end: 20060412
  3. TUSSIONEX ^FISONS^ (HYDROCODONE, PHENYLTOLOXAMINE) [Suspect]

REACTIONS (1)
  - OVERDOSE [None]
